FAERS Safety Report 7812527-0 (Version None)
Quarter: 2011Q4

REPORT INFORMATION
  Report Type: 
  Country: None (occurrence: None)
  Receive Date: 20111013
  Receipt Date: 20111010
  Transmission Date: 20120403
  Serious: No
  Sender: FDA-Public Use
  Company Number: US-PFIZER INC-2011242557

PATIENT
  Sex: Female
  Weight: 67.12 kg

DRUGS (2)
  1. PROCARDIA XL [Suspect]
     Indication: CARDIAC DISORDER
     Dosage: UNK
     Route: 048
  2. LOPRESSOR [Concomitant]
     Indication: MYOCARDIAL INFARCTION
     Dosage: 50 MG, UNK

REACTIONS (1)
  - MEDICATION RESIDUE [None]
